FAERS Safety Report 18768625 (Version 1)
Quarter: 2021Q1

REPORT INFORMATION
  Report Type: Spontaneous
  Country: US (occurrence: US)
  Receive Date: 20210121
  Receipt Date: 20210121
  Transmission Date: 20210419
  Serious: Yes (Other)
  Sender: FDA-Public Use
  Company Number: None

PATIENT
  Age: 41 Year
  Sex: Female
  Weight: 110.25 kg

DRUGS (8)
  1. VIIBRYD [Concomitant]
     Active Substance: VILAZODONE HYDROCHLORIDE
  2. SYNTHROID [Concomitant]
     Active Substance: LEVOTHYROXINE SODIUM
  3. REPLESTA [Concomitant]
     Active Substance: CHOLECALCIFEROL
  4. CARVEDILOL. [Concomitant]
     Active Substance: CARVEDILOL
  5. CLONAZAPAM [Concomitant]
     Active Substance: CLONAZEPAM
  6. LISINOPRIL. [Concomitant]
     Active Substance: LISINOPRIL
  7. CIPROFLOXACIN. [Suspect]
     Active Substance: CIPROFLOXACIN
     Indication: URINARY TRACT INFECTION
     Dosage: ?          QUANTITY:2 TABLET(S);?
     Route: 048
     Dates: start: 20210118, end: 20210120
  8. VITAMIN D WAFER [Concomitant]

REACTIONS (5)
  - Hyperhidrosis [None]
  - Tachycardia [None]
  - Palpitations [None]
  - Anxiety [None]
  - Visual impairment [None]

NARRATIVE: CASE EVENT DATE: 20210120
